FAERS Safety Report 18771235 (Version 2)
Quarter: 2021Q1

REPORT INFORMATION
  Report Type: Report from Study
  Country: IT (occurrence: IT)
  Receive Date: 20210121
  Receipt Date: 20210125
  Transmission Date: 20210419
  Serious: Yes (Death)
  Sender: FDA-Public Use
  Company Number: IT-PFIZER INC-2021042595

PATIENT
  Age: 29 Year
  Sex: Male

DRUGS (1)
  1. DIAZEPAM. [Suspect]
     Active Substance: DIAZEPAM
     Dosage: 1.0 MG/ML (DIAZEPAM 1.0 MG/ML IN MEOH)

REACTIONS (2)
  - Toxicity to various agents [Fatal]
  - Overdose [Fatal]
